FAERS Safety Report 15637106 (Version 3)
Quarter: 2019Q2

REPORT INFORMATION
  Report Type: Report from Study
  Country: DE (occurrence: DE)
  Receive Date: 20181120
  Receipt Date: 20190424
  Transmission Date: 20190711
  Serious: Yes (Other)
  Sender: FDA-Public Use
  Company Number: DE-JNJFOC-20181121085

PATIENT

DRUGS (5)
  1. INFLIXIMAB, RECOMBINANT [Suspect]
     Active Substance: INFLIXIMAB
     Indication: RHEUMATOID ARTHRITIS
     Route: 042
  2. INFLIXIMAB [Suspect]
     Active Substance: INFLIXIMAB
     Indication: RHEUMATOID ARTHRITIS
     Route: 065
  3. INFLIXIMAB, RECOMBINANT [Suspect]
     Active Substance: INFLIXIMAB
     Indication: RHEUMATOID ARTHRITIS
     Route: 042
  4. INFLIXIMAB [Suspect]
     Active Substance: INFLIXIMAB
     Indication: RHEUMATOID ARTHRITIS
     Route: 065
  5. METHOTREXATE. [Concomitant]
     Active Substance: METHOTREXATE
     Indication: RHEUMATOID ARTHRITIS
     Route: 065

REACTIONS (19)
  - Nasopharyngitis [Unknown]
  - Hypersensitivity [Unknown]
  - Infusion related reaction [Unknown]
  - Pruritus [Unknown]
  - Urinary tract infection [Unknown]
  - Neoplasm malignant [Unknown]
  - Rash [Unknown]
  - Erythema [Unknown]
  - Vomiting [Unknown]
  - Upper respiratory tract infection [Unknown]
  - Skin disorder [Unknown]
  - Hypotension [Unknown]
  - Latent tuberculosis [Unknown]
  - Infection [Unknown]
  - Bronchitis [Unknown]
  - Dyspnoea [Unknown]
  - Adverse event [Unknown]
  - Nausea [Unknown]
  - Flushing [Unknown]
